FAERS Safety Report 12069457 (Version 3)
Quarter: 2016Q1

REPORT INFORMATION
  Report Type: Spontaneous
  Country: US (occurrence: US)
  Receive Date: 20160211
  Receipt Date: 20160323
  Transmission Date: 20160526
  Serious: Yes (Hospitalization)
  Sender: FDA-Public Use
  Company Number: US-BEH-2016058681

PATIENT
  Age: 8 Year
  Sex: Male
  Weight: 19 kg

DRUGS (16)
  1. HIZENTRA [Suspect]
     Active Substance: HUMAN IMMUNOGLOBULIN G
     Indication: PRODUCT USED FOR UNKNOWN INDICATION
     Dosage: 2 GM 20 ML VIALS
     Route: 058
  2. LEVETIRACETAM. [Concomitant]
     Active Substance: LEVETIRACETAM
  3. FLONASE [Concomitant]
     Active Substance: FLUTICASONE PROPIONATE
  4. DIAZEPAM. [Concomitant]
     Active Substance: DIAZEPAM
  5. DIPHENHYDRAMINE. [Concomitant]
     Active Substance: DIPHENHYDRAMINE
  6. LMX [Concomitant]
     Active Substance: LIDOCAINE
  7. ALBUTEROL. [Concomitant]
     Active Substance: ALBUTEROL
  8. DAPSONE. [Concomitant]
     Active Substance: DAPSONE
  9. PREDNISONE. [Concomitant]
     Active Substance: PREDNISONE
  10. FOLIC ACID. [Concomitant]
     Active Substance: FOLIC ACID
  11. ARTANE [Concomitant]
     Active Substance: TRIHEXYPHENIDYL HYDROCHLORIDE
  12. KEPPRA [Concomitant]
     Active Substance: LEVETIRACETAM
  13. ZINC [Concomitant]
     Active Substance: ZINC\ZINC CHLORIDE
  14. OMEPRAZOLE. [Concomitant]
     Active Substance: OMEPRAZOLE
  15. EPIPEN [Concomitant]
     Active Substance: EPINEPHRINE
  16. METHOTREXATE [Concomitant]
     Active Substance: METHOTREXATE

REACTIONS (4)
  - Dehydration [Recovered/Resolved]
  - Sinusitis [Recovered/Resolved]
  - Lung infection [Unknown]
  - Respiratory tract infection viral [Recovered/Resolved]

NARRATIVE: CASE EVENT DATE: 20160122
